FAERS Safety Report 5032717-2 (Version None)
Quarter: 2006Q2

REPORT INFORMATION
  Report Type: 
  Country: None (occurrence: None)
  Receive Date: 20060622
  Receipt Date: 20060511
  Transmission Date: 20061013
  Serious: Yes (Hospitalization)
  Sender: FDA-Public Use
  Company Number: 2006SE02759

PATIENT
  Age: 77 Year
  Sex: Female

DRUGS (7)
  1. METOPROLOL SUCCINATE [Interacting]
     Indication: MYOCARDIAL INFARCTION
     Route: 048
     Dates: end: 20060301
  2. VENTOLIN [Interacting]
     Indication: BRONCHITIS CHRONIC
     Route: 055
  3. SIMVASTATIN [Suspect]
     Indication: MYOCARDIAL INFARCTION
     Route: 048
     Dates: end: 20060301
  4. SPIRIVA [Concomitant]
     Dosage: HARD CAPSULE
     Route: 055
  5. GLYTRIN [Concomitant]
  6. TROMBYL [Concomitant]
  7. SERETIDE DISKUS [Concomitant]
     Route: 055

REACTIONS (4)
  - ATRIAL FIBRILLATION [None]
  - DRUG INTERACTION [None]
  - HYPOTENSION [None]
  - TRANSAMINASES INCREASED [None]
